FAERS Safety Report 8192340-8 (Version None)
Quarter: 2012Q1

REPORT INFORMATION
  Report Type: 
  Country: None (occurrence: None)
  Receive Date: 20120307
  Receipt Date: 20120229
  Transmission Date: 20120608
  Serious: Yes (Death, Hospitalization)
  Sender: FDA-Public Use
  Company Number: GB-BRISTOL-MYERS SQUIBB COMPANY-16424111

PATIENT
  Age: 39 Year
  Sex: Female
  Weight: 67 kg

DRUGS (2)
  1. YERVOY [Suspect]
     Indication: METASTATIC MALIGNANT MELANOMA
     Dosage: 4 CYCLES
     Route: 042
     Dates: start: 20111207, end: 20120209
  2. PREDNISOLONE [Concomitant]

REACTIONS (5)
  - ENTERITIS [None]
  - CARDIAC ARREST [None]
  - COLITIS [None]
  - FREQUENT BOWEL MOVEMENTS [None]
  - SYNCOPE [None]
